FAERS Safety Report 6307539-2 (Version None)
Quarter: 2009Q3

REPORT INFORMATION
  Report Type: 
  Country: None (occurrence: None)
  Receive Date: 20090810
  Receipt Date: 20090728
  Transmission Date: 20100115
  Serious: Yes (Hospitalization, Other)
  Sender: FDA-Public Use
  Company Number: 2009246944

PATIENT
  Age: 43 Year
  Sex: Female

DRUGS (8)
  1. FRAGMIN [Suspect]
     Indication: INTRACARDIAC THROMBUS
     Dosage: 5000 IU, IN 12 HOURS, SUBCUTANEOUS
     Route: 058
  2. WARFARIN SODIUM [Suspect]
     Indication: INTRACARDIAC THROMBUS
     Dosage: 3 MG, DAILY
  3. TEICOPLANIN (TEICOLANIN) [Concomitant]
  4. CARBAPEN (CARBENICILLIN DISODIUM) [Concomitant]
  5. INSULIN (INSULIN) [Concomitant]
  6. AMIODARONE HCL [Concomitant]
  7. POTASSIUM CHLORIDE [Concomitant]
  8. PHENOXYBENZAMINE (PHENOXYBENZAMINE) [Concomitant]

REACTIONS (8)
  - AMPUTATION [None]
  - EMBOLISM [None]
  - FEMORAL ARTERY OCCLUSION [None]
  - GANGRENE [None]
  - INTENTIONAL DRUG MISUSE [None]
  - INTRACARDIAC THROMBUS [None]
  - PHAEOCHROMOCYTOMA [None]
  - RENAL INFARCT [None]
